FAERS Safety Report 4309226-9 (Version None)
Quarter: 2004Q1

REPORT INFORMATION
  Report Type: 
  Country: None (occurrence: None)
  Receive Date: 20040301
  Receipt Date: 20040218
  Transmission Date: 20041129
  Serious: Yes (Hospitalization)
  Sender: FDA-Public Use
  Company Number: US-JNJFOC-20031201299

PATIENT
  Age: 60 Year
  Sex: Male

DRUGS (21)
  1. DURAGESIC [Suspect]
     Indication: PAIN
     Dosage: SEE IMAGE
     Route: 062
     Dates: end: 20031001
  2. DURAGESIC [Suspect]
     Indication: PAIN
     Dosage: SEE IMAGE
     Route: 062
     Dates: start: 20031001, end: 20031101
  3. DURAGESIC [Suspect]
     Indication: PAIN
     Dosage: SEE IMAGE
     Route: 062
     Dates: start: 20030501
  4. DURAGESIC [Suspect]
     Indication: PAIN
     Dosage: SEE IMAGE
     Route: 062
     Dates: start: 20031101
  5. BACLOFEN (BACLOFEN) TABLETS [Concomitant]
  6. ZOCOR [Concomitant]
  7. PREDNISONE [Concomitant]
  8. CLONIDINE [Concomitant]
  9. NEURONTIN [Concomitant]
  10. FOLIC ACID (FOLIC ACID) TABLETS [Concomitant]
  11. PRILOSEC [Concomitant]
  12. VALIUM [Concomitant]
  13. AMBIEN [Concomitant]
  14. WELBUTRIN (BUPROPION HYDROCHLORIDE) TABLETS [Concomitant]
  15. HYDROCODONE (HYDROCODONE) TABLETS [Concomitant]
  16. GEMFIBROZIL (GEMFIBROZIL) TABLETS [Concomitant]
  17. SEREVENT (SALMETEROL XINAFOATE) AEROSOLS [Concomitant]
  18. COMBIVENT (COMBIVENT) AEROSOLS [Concomitant]
  19. ASA (ACETYLSALICYLIC ACID) TABLETS [Concomitant]
  20. ALLOPURINOL (ALLOPURINOL) TABLETS [Concomitant]
  21. LOTENSIN (BENAZEPRIL HYDROCHLORIDE) TABLETS [Concomitant]

REACTIONS (7)
  - ASTHENIA [None]
  - DRUG EFFECT DECREASED [None]
  - FATIGUE [None]
  - INTENTIONAL MISUSE [None]
  - LOSS OF CONSCIOUSNESS [None]
  - NAUSEA [None]
  - SOMNOLENCE [None]
